FAERS Safety Report 9197541 (Version 2)
Quarter: 2013Q2

REPORT INFORMATION
  Report Type: Spontaneous
  Country: US (occurrence: US)
  Receive Date: 20130328
  Receipt Date: 20130426
  Transmission Date: 20140414
  Serious: Yes (Death, Other)
  Sender: FDA-Public Use
  Company Number: US-CELGENEUS-163-21880-13033320

PATIENT
  Age: 74 Year
  Sex: Male

DRUGS (1)
  1. REVLIMID [Suspect]
     Indication: PLASMA CELL MYELOMA
     Dosage: 25 MILLIGRAM
     Route: 048
     Dates: start: 20121212, end: 20130319

REACTIONS (6)
  - Death [Fatal]
  - Terminal state [Unknown]
  - Skin disorder [Unknown]
  - Unevaluable event [Unknown]
  - Pain [Unknown]
  - Drug ineffective [Unknown]
